FAERS Safety Report 8849508 (Version 1)
Quarter: 2012Q4

REPORT INFORMATION
  Report Type: Report from Study
  Country: JP (occurrence: JP)
  Receive Date: 20121019
  Receipt Date: 20121019
  Transmission Date: 20130627
  Serious: Yes (Other)
  Sender: FDA-Public Use
  Company Number: JP-BAYER-2012-109051

PATIENT
  Age: 53 Year
  Sex: Male

DRUGS (1)
  1. ASPIRIN [Suspect]
     Dosage: 500 mg, UNK

REACTIONS (3)
  - Urticaria [None]
  - Shock [None]
  - Anaphylactic reaction [None]
